FAERS Safety Report 6157937-5 (Version None)
Quarter: 2009Q2

REPORT INFORMATION
  Report Type: 
  Country: None (occurrence: None)
  Receive Date: 20090417
  Receipt Date: 20090414
  Transmission Date: 20091009
  Serious: Yes (Death)
  Sender: FDA-Public Use
  Company Number: JP-SANOFI-SYNTHELABO-F01200800836

PATIENT
  Sex: Male

DRUGS (6)
  1. MUCOSTA [Concomitant]
     Dosage: UNK
     Dates: start: 20080304
  2. BLOPRESS [Concomitant]
     Dosage: UNK
     Dates: start: 20071108
  3. BEVACIZUMAB [Suspect]
     Route: 042
     Dates: start: 20080318, end: 20080318
  4. ISOVORIN [Suspect]
     Route: 041
     Dates: start: 20080319, end: 20080319
  5. FLUOROURACIL [Suspect]
     Route: 042
     Dates: start: 20080320, end: 20080320
  6. ELPLAT [Suspect]
     Indication: RECTAL CANCER RECURRENT
     Route: 041
     Dates: start: 20080318, end: 20080318

REACTIONS (4)
  - ACUTE RESPIRATORY DISTRESS SYNDROME [None]
  - INTESTINAL ISCHAEMIA [None]
  - PULMONARY EMBOLISM [None]
  - SHOCK [None]
